FAERS Safety Report 6252588-6 (Version None)
Quarter: 2009Q3

REPORT INFORMATION
  Report Type: 
  Country: None (occurrence: None)
  Receive Date: 20090701
  Receipt Date: 20090622
  Transmission Date: 20100115
  Serious: Yes (Hospitalization, Other)
  Sender: FDA-Public Use
  Company Number: US-ELI_LILLY_AND_COMPANY-US200906005076

PATIENT
  Sex: Female

DRUGS (7)
  1. FORTEO [Suspect]
     Dosage: UNK, UNK
  2. EFFEXOR [Concomitant]
  3. ATENOLOL [Concomitant]
  4. MULTI-VITAMIN [Concomitant]
  5. DARVON [Concomitant]
  6. ALEVE [Concomitant]
  7. TEMAZEPAM [Concomitant]

REACTIONS (10)
  - ARTHRITIS [None]
  - DIZZINESS [None]
  - FALL [None]
  - GAIT DISTURBANCE [None]
  - INJURY [None]
  - MUSCULAR WEAKNESS [None]
  - MYODESOPSIA [None]
  - OPEN FRACTURE [None]
  - PHOTOPSIA [None]
  - VISUAL IMPAIRMENT [None]
